FAERS Safety Report 24203700 (Version 1)
Quarter: 2024Q3

REPORT INFORMATION
  Report Type: Report from Study
  Country: CA (occurrence: CA)
  Receive Date: 20240813
  Receipt Date: 20240813
  Transmission Date: 20241016
  Serious: Yes (Other)
  Sender: JAZZ
  Company Number: CA-JAZZ PHARMACEUTICALS-2024-CA-012139

PATIENT
  Sex: Male

DRUGS (1)
  1. EPIDIOLEX [Suspect]
     Active Substance: CANNABIDIOL
     Indication: Product used for unknown indication
     Dosage: 1.34 MILLILITER, BID (FOR 14 DAYS)
     Route: 048

REACTIONS (1)
  - Seizure [Unknown]
